FAERS Safety Report 7340212-0 (Version None)
Quarter: 2011Q1

REPORT INFORMATION
  Report Type: 
  Country: None (occurrence: None)
  Receive Date: 20110228
  Receipt Date: 20110214
  Transmission Date: 20110831
  Serious: Yes (Congenital Anomaly)
  Sender: FDA-Public Use
  Company Number: 027416

PATIENT

DRUGS (3)
  1. LEVETIRACETAM [Suspect]
     Dosage: (TRANSPLACENTAL)
     Route: 064
  2. VALPROIC ACID [Suspect]
     Dosage: (TRANSPLACENTAL)
     Route: 064
  3. TOPIRAMATE [Suspect]
     Dosage: (300 MG TRANSPLACENTAL)
     Route: 064

REACTIONS (2)
  - MATERNAL DRUGS AFFECTING FOETUS [None]
  - PATENT DUCTUS ARTERIOSUS [None]
